FAERS Safety Report 12309139 (Version 1)
Quarter: 2016Q2

REPORT INFORMATION
  Report Type: Spontaneous
  Country: US (occurrence: US)
  Receive Date: 20160427
  Receipt Date: 20160427
  Transmission Date: 20160815
  Serious: No
  Sender: FDA-Public Use
  Company Number: US-GLENMARK PHARMACEUTICALS INC, USA.-2015GMK017817

PATIENT

DRUGS (1)
  1. IMIQUIMOD CREAM [Suspect]
     Active Substance: IMIQUIMOD
     Indication: BASAL CELL CARCINOMA
     Dosage: UNK, BID FOR EIGHT WEEKS
     Route: 061

REACTIONS (4)
  - Rash [Unknown]
  - Off label use [Unknown]
  - Scab [Unknown]
  - Wound secretion [Unknown]
